FAERS Safety Report 14093524 (Version 1)
Quarter: 2017Q4

REPORT INFORMATION
  Report Type: Spontaneous
  Country: AE (occurrence: AE)
  Receive Date: 20171016
  Receipt Date: 20171016
  Transmission Date: 20180321
  Serious: Yes (Other)
  Sender: FDA-Public Use
  Company Number: PHHY2017AE150737

PATIENT
  Sex: Male

DRUGS (1)
  1. NEVANAC [Suspect]
     Active Substance: NEPAFENAC
     Indication: POSTOPERATIVE CARE
     Route: 047

REACTIONS (2)
  - Corneal opacity [Recovered/Resolved]
  - Corneal disorder [Recovered/Resolved]

NARRATIVE: CASE EVENT DATE: 20171011
